FAERS Safety Report 11030360 (Version 3)
Quarter: 2015Q2

REPORT INFORMATION
  Report Type: Report from Study
  Country: US (occurrence: None)
  Receive Date: 20150413
  Receipt Date: 20150515
  Transmission Date: 20150821
  Serious: Yes (Hospitalization, Other)
  Sender: FDA-Public Use
  Company Number: ADR-2015-00685

PATIENT
  Age: 40 Year
  Sex: Female

DRUGS (3)
  1. SUFENTA [Suspect]
     Active Substance: SUFENTANIL CITRATE
     Indication: SPINAL PAIN
  2. BUPIVACAINE INTRATHECAL [Suspect]
     Active Substance: BUPIVACAINE
     Dosage: 8.014MG/DAY
  3. BACLOFEN INTRATHECAL [Suspect]
     Active Substance: BACLOFEN
     Indication: SPINAL PAIN

REACTIONS (2)
  - Pocket erosion [None]
  - Skin atrophy [None]

NARRATIVE: CASE EVENT DATE: 20150129
